FAERS Safety Report 24752112 (Version 1)
Quarter: 2024Q4

REPORT INFORMATION
  Report Type: Spontaneous
  Country: US (occurrence: US)
  Receive Date: 20241219
  Receipt Date: 20241219
  Transmission Date: 20250115
  Serious: Yes (Death)
  Sender: KARYOPHARM THERAPEUTICS
  Company Number: US-KARYOPHARM-2024KPT001903

PATIENT

DRUGS (1)
  1. XPOVIO [Suspect]
     Active Substance: SELINEXOR
     Indication: Anaplastic large cell lymphoma T- and null-cell types
     Dosage: 40 MG, 2X/WEEK
     Route: 048
     Dates: end: 20241214

REACTIONS (1)
  - Death [Fatal]

NARRATIVE: CASE EVENT DATE: 20241214
